FAERS Safety Report 17725061 (Version 1)
Quarter: 2020Q2

REPORT INFORMATION
  Report Type: Spontaneous
  Country: CN (occurrence: CN)
  Receive Date: 20200429
  Receipt Date: 20200429
  Transmission Date: 20200714
  Serious: Yes (Hospitalization, Other)
  Sender: FDA-Public Use
  Company Number: CN-INCYTE CORPORATION-2020IN003927

PATIENT

DRUGS (6)
  1. ANDRIOL [Concomitant]
     Active Substance: TESTOSTERONE UNDECANOATE
     Indication: PRODUCT USED FOR UNKNOWN INDICATION
     Dosage: 2 DF, QD (2 PILLS/D)
     Route: 065
  2. JAKAVI [Suspect]
     Active Substance: RUXOLITINIB
     Dosage: 2 DF, BID (2 PILLS EACH DAY)
     Route: 048
  3. JAKAVI [Suspect]
     Active Substance: RUXOLITINIB
     Indication: PRODUCT USED FOR UNKNOWN INDICATION
     Dosage: 3 DF, BID (3 PILLS EACH TIME)
     Route: 048
     Dates: start: 20180310
  4. JAKAVI [Suspect]
     Active Substance: RUXOLITINIB
     Dosage: 3 DF, BID (3 PILLS EACH)
     Route: 048
  5. THALIDOMIDE [Concomitant]
     Active Substance: THALIDOMIDE
     Indication: PRODUCT USED FOR UNKNOWN INDICATION
     Dosage: 2 DF, QHS (2 PILLS EVERY NIGHT)
     Route: 065
  6. HYDROXYCARBAMIDE [Concomitant]
     Active Substance: HYDROXYUREA
     Indication: PRODUCT USED FOR UNKNOWN INDICATION
     Dosage: 1 DF, QD (1 PILL/D)
     Route: 065

REACTIONS (4)
  - Anaemia [Recovering/Resolving]
  - Pneumonitis [Unknown]
  - Splenomegaly [Recovering/Resolving]
  - White blood cell count increased [Recovering/Resolving]
